FAERS Safety Report 16379213 (Version 1)
Quarter: 2019Q2

REPORT INFORMATION
  Report Type: Spontaneous
  Country: US (occurrence: US)
  Receive Date: 20190531
  Receipt Date: 20190531
  Transmission Date: 20190711
  Serious: No
  Sender: FDA-Public Use
  Company Number: US-APOPHARMA USA, INC.-2018AP024483

PATIENT
  Age: 62 Year
  Sex: Male
  Weight: 97 kg

DRUGS (15)
  1. ALKERAN [Suspect]
     Active Substance: MELPHALAN
     Dosage: 8 MG, SINGLE
     Route: 013
  2. ALKERAN [Suspect]
     Active Substance: MELPHALAN
     Indication: UVEAL MELANOMA
     Dosage: 15 MG, SINGLE
     Route: 013
  3. ALKERAN [Suspect]
     Active Substance: MELPHALAN
     Dosage: 10 MG, SINGLE
     Route: 013
  4. ALKERAN [Suspect]
     Active Substance: MELPHALAN
     Dosage: 12 MG, SINGLE
     Route: 013
  5. ALKERAN [Suspect]
     Active Substance: MELPHALAN
     Dosage: 7 MG, SINGLE
     Route: 013
  6. ALKERAN [Suspect]
     Active Substance: MELPHALAN
     Dosage: 7 MG, SINGLE
     Route: 013
  7. ALKERAN [Suspect]
     Active Substance: MELPHALAN
     Dosage: 5 MG, SINGLE
     Route: 013
  8. ALKERAN [Suspect]
     Active Substance: MELPHALAN
     Dosage: 11 MG, SINGLE
     Route: 013
  9. ALKERAN [Suspect]
     Active Substance: MELPHALAN
     Dosage: 8 MG, SINGLE
     Route: 013
  10. ALKERAN [Suspect]
     Active Substance: MELPHALAN
     Dosage: 3 MG, SINGLE
     Route: 013
  11. ALKERAN [Suspect]
     Active Substance: MELPHALAN
     Dosage: 3 MG, SINGLE
     Route: 013
  12. ALKERAN [Suspect]
     Active Substance: MELPHALAN
     Dosage: 12 MG, SINGLE
     Route: 013
  13. ALKERAN [Suspect]
     Active Substance: MELPHALAN
     Dosage: 4 MG, SINGLE
     Route: 013
  14. ALKERAN [Suspect]
     Active Substance: MELPHALAN
     Dosage: 3 MG, SINGLE
     Route: 013
  15. ALKERAN [Suspect]
     Active Substance: MELPHALAN
     Dosage: 12 MG, SINGLE
     Route: 013

REACTIONS (1)
  - Erythema [Recovered/Resolved]
